FAERS Safety Report 8169155-X (Version None)
Quarter: 2012Q1

REPORT INFORMATION
  Report Type: 
  Country: None (occurrence: None)
  Receive Date: 20120227
  Receipt Date: 20120215
  Transmission Date: 20120608
  Serious: Yes (Hospitalization, Other)
  Sender: FDA-Public Use
  Company Number: US-RB-037421-12

PATIENT
  Age: 36 Year
  Sex: Male

DRUGS (1)
  1. SUBOXONE [Suspect]
     Indication: DRUG DEPENDENCE
     Route: 060
     Dates: start: 20111001

REACTIONS (6)
  - HOT FLUSH [None]
  - PANIC ATTACK [None]
  - HYPERHIDROSIS [None]
  - HAEMOPTYSIS [None]
  - COLD SWEAT [None]
  - PNEUMONIA BACTERIAL [None]
